FAERS Safety Report 24938177 (Version 3)
Quarter: 2025Q2

REPORT INFORMATION
  Report Type: Report from Study
  Country: US (occurrence: US)
  Receive Date: 20250206
  Receipt Date: 20250407
  Transmission Date: 20250716
  Serious: Yes (Death)
  Sender: OTSUKA
  Company Number: US-OTSUKA-2025_002789

PATIENT
  Sex: Male

DRUGS (2)
  1. TOLVAPTAN [Suspect]
     Active Substance: TOLVAPTAN
     Indication: Congenital cystic kidney disease
     Dosage: 30 MG, QD (UPON WAKING IN THE MORNING)
     Route: 048
     Dates: start: 20200806
  2. TOLVAPTAN [Suspect]
     Active Substance: TOLVAPTAN
     Dosage: 15 MG, QD (8 H LATER)
     Route: 048
     Dates: start: 20200806

REACTIONS (3)
  - Cardiac arrest [Fatal]
  - Septic shock [Fatal]
  - Underdose [Unknown]
